FAERS Safety Report 12240868 (Version 1)
Quarter: 2016Q2

REPORT INFORMATION
  Report Type: Spontaneous
  Country: SE (occurrence: SE)
  Receive Date: 20160406
  Receipt Date: 20160406
  Transmission Date: 20160815
  Serious: Yes (Other)
  Sender: FDA-Public Use
  Company Number: SE-ROCHE-1737386

PATIENT
  Sex: Female

DRUGS (2)
  1. ALENDRONATE [Concomitant]
     Active Substance: ALENDRONATE SODIUM
     Route: 065
     Dates: start: 201509
  2. CLONAZEPAM. [Suspect]
     Active Substance: CLONAZEPAM
     Indication: NEURALGIA
     Route: 065

REACTIONS (2)
  - Pain [Not Recovered/Not Resolved]
  - Fracture [Not Recovered/Not Resolved]
